FAERS Safety Report 19791516 (Version 2)
Quarter: 2021Q3

REPORT INFORMATION
  Report Type: Spontaneous
  Country: JP (occurrence: JP)
  Receive Date: 20210906
  Receipt Date: 20210914
  Transmission Date: 20211014
  Serious: Yes (Other)
  Sender: FDA-Public Use
  Company Number: JP-PFIZER INC-202101082185

PATIENT
  Age: 62 Year
  Sex: Female

DRUGS (3)
  1. LEVOTHYROXINE. [Suspect]
     Active Substance: LEVOTHYROXINE
     Indication: SECONDARY HYPOTHYROIDISM
     Dosage: 50 UG, DAILY
     Route: 048
  2. SOMATROPIN. [Suspect]
     Active Substance: SOMATROPIN
     Indication: SECONDARY HYPOTHYROIDISM
     Dosage: 0.5 MG, 1X/DAY
     Route: 058
  3. SOMATROPIN. [Suspect]
     Active Substance: SOMATROPIN
     Indication: GROWTH HORMONE DEFICIENCY

REACTIONS (1)
  - Endocrine ophthalmopathy [Recovered/Resolved]
